FAERS Safety Report 6767301-3 (Version None)
Quarter: 2010Q2

REPORT INFORMATION
  Report Type: 
  Country: None (occurrence: None)
  Receive Date: 20100611
  Receipt Date: 20100611
  Transmission Date: 20101027
  Serious: Yes (Hospitalization)
  Sender: FDA-Public Use
  Company Number: None

PATIENT
  Age: 76 Year
  Sex: Female
  Weight: 40.3701 kg

DRUGS (2)
  1. ROCURONIUM BROMIDE [Suspect]
     Indication: GENERAL ANAESTHESIA
     Dosage: ONCE
     Dates: start: 20100422, end: 20100422
  2. ROCURONIUM BROMIDE [Suspect]
     Indication: NEUROMUSCULAR BLOCKADE
     Dosage: ONCE
     Dates: start: 20100422, end: 20100422

REACTIONS (2)
  - NO THERAPEUTIC RESPONSE [None]
  - RESPIRATORY FAILURE [None]
